FAERS Safety Report 5918681-X (Version None)
Quarter: 2008Q4

REPORT INFORMATION
  Report Type: 
  Country: None (occurrence: None)
  Receive Date: 20081015
  Receipt Date: 20080602
  Transmission Date: 20090506
  Serious: No
  Sender: FDA-Public Use
  Company Number: US-ASTRAZENECA-2008UW11096

PATIENT
  Sex: Male

DRUGS (2)
  1. SYMBICORT [Suspect]
     Indication: CHRONIC OBSTRUCTIVE PULMONARY DISEASE
     Dosage: 160/4.5 UG
     Route: 055
     Dates: start: 20080201, end: 20080528
  2. HYDROCHLOROTHIAZIDE [Concomitant]

REACTIONS (1)
  - VOCAL CORD DISORDER [None]
